FAERS Safety Report 8610849 (Version 4)
Quarter: 2012Q4

REPORT INFORMATION
  Report Type: 
  Country: US (occurrence: US)
  Receive Date: 20120612
  Receipt Date: 20121115
  Transmission Date: 20130627
  Serious: Yes (Hospitalization)
  Sender: FDA-Public Use
  Company Number: US-ACTELION-A-NJ2012-66615

PATIENT
  Age: 69 Year
  Sex: Female

DRUGS (6)
  1. TRACLEER [Suspect]
     Indication: PULMONARY ARTERIAL HYPERTENSION
     Dosage: UNK
     Route: 048
     Dates: start: 20090720
  2. VELETRI [Suspect]
     Indication: PULMONARY ARTERIAL HYPERTENSION
     Dosage: 25 ng/kg, per min
     Route: 041
     Dates: start: 20111129
  3. ADCIRCA [Concomitant]
  4. COUMADIN [Concomitant]
  5. LASIX [Concomitant]
  6. DIGOXIN [Concomitant]

REACTIONS (3)
  - Lumbar vertebral fracture [Recovering/Resolving]
  - Pain [Recovering/Resolving]
  - Back pain [Recovering/Resolving]
